FAERS Safety Report 23500042 (Version 1)
Quarter: 2024Q1

REPORT INFORMATION
  Report Type: Spontaneous
  Country: GB (occurrence: GB)
  Receive Date: 20240208
  Receipt Date: 20240208
  Transmission Date: 20240410
  Serious: No
  Sender: FDA-Public Use
  Company Number: None

PATIENT
  Age: 82 Year
  Sex: Female
  Weight: 71 kg

DRUGS (15)
  1. CEPHALEXIN [Suspect]
     Active Substance: CEPHALEXIN
     Indication: Product used for unknown indication
     Dosage: 750 MILLIGRAM, QD (CAPSULE)
     Route: 065
     Dates: start: 20230912
  2. AMIODARONE [Concomitant]
     Active Substance: AMIODARONE
     Indication: Ill-defined disorder
     Dosage: 1 DOSAGE FORM, OD (ONCE DAILY)
     Route: 065
     Dates: start: 20230216
  3. BETAMETHASONE VALERATE [Concomitant]
     Active Substance: BETAMETHASONE VALERATE
     Indication: Ill-defined disorder
     Dosage: UNK, BID (APPLY SPARINGLY - TWICE DAILY)
     Route: 065
     Dates: start: 20220713, end: 20230626
  4. CETIRIZINE [Concomitant]
     Active Substance: CETIRIZINE HYDROCHLORIDE
     Indication: Ill-defined disorder
     Dosage: 1 DOSAGE FORM, OD (TAKE ONE TABLET ONCE A DAY)
     Route: 065
     Dates: start: 20220713, end: 20230626
  5. CLOBETASONE BUTYRATE [Concomitant]
     Active Substance: CLOBETASONE BUTYRATE
     Indication: Ill-defined disorder
     Dosage: UNK, BID (APPLY SPARINGLY - TWICE DAILY)
     Route: 065
     Dates: start: 20220713
  6. CHOLECALCIFEROL [Concomitant]
     Active Substance: CHOLECALCIFEROL
     Indication: Ill-defined disorder
     Dosage: UNK, OD (TAKE ONE CAPSULE ONCE DAILY)
     Route: 065
     Dates: start: 20220713
  7. FEXOFENADINE [Concomitant]
     Active Substance: FEXOFENADINE HYDROCHLORIDE
     Indication: Ill-defined disorder
     Dosage: 1 DOSAGE FORM, QD (TAKE ONE TABLET IN THE MORNING)
     Route: 065
     Dates: start: 20220713, end: 20230626
  8. FLUTICASONE PROPIONATE [Concomitant]
     Active Substance: FLUTICASONE PROPIONATE
     Indication: Ill-defined disorder
     Dosage: UNK, BID (ONE SPRAY TWICE DAILY BOTH NOSTRILS)
     Route: 065
     Dates: start: 20220713, end: 20230626
  9. LANSOPRAZOLE [Concomitant]
     Active Substance: LANSOPRAZOLE
     Indication: Ill-defined disorder
     Dosage: 1 DOSAGE FORM, OD (TAKE ONE CAPSULE ONCE A DAY)
     Route: 065
     Dates: start: 20230201
  10. LEVOTHYROXINE [Concomitant]
     Active Substance: LEVOTHYROXINE\LEVOTHYROXINE SODIUM
     Indication: Ill-defined disorder
     Dosage: 1 DOSAGE FORM, QD (TAKE ONE TABLET EACH MORNING)
     Route: 065
     Dates: start: 20230201
  11. METHENAMINE HIPPURATE [Concomitant]
     Active Substance: METHENAMINE HIPPURATE
     Indication: Ill-defined disorder
     Dosage: UNK, BID (TAKE ONE TABLET TWICE A DAY)
     Route: 065
     Dates: start: 20230627
  12. RIVAROXABAN [Concomitant]
     Active Substance: RIVAROXABAN
     Indication: Ill-defined disorder
     Dosage: 1 DOSAGE FORM, OD (TAKE ONE TABLET ONCE A DAY WITH FOOD)
     Route: 065
     Dates: start: 20230216
  13. ALBUTEROL [Concomitant]
     Active Substance: ALBUTEROL
     Indication: Ill-defined disorder
     Dosage: UNK (TWO PUFFS UP TO FOUR TIMES A DAY. (RETURN YOUR)
     Dates: start: 20230216
  14. SERETIDE [Concomitant]
     Active Substance: FLUTICASONE PROPIONATE\SALMETEROL XINAFOATE
     Indication: Ill-defined disorder
     Dosage: 2 DOSAGE FORM, BID (INHALE TWO DOSES TWICE A DAY)
     Dates: start: 20220713
  15. TERBUTALINE [Concomitant]
     Active Substance: TERBUTALINE
     Indication: Ill-defined disorder
     Dosage: UNK (ONE PUFF UP TO FOUR TIMES A DAY )
     Dates: start: 20220713, end: 20230626

REACTIONS (1)
  - Abdominal discomfort [Recovering/Resolving]
